FAERS Safety Report 5493350-1 (Version None)
Quarter: 2007Q4

REPORT INFORMATION
  Report Type: 
  Country: None (occurrence: None)
  Receive Date: 20071022
  Receipt Date: 20071022
  Transmission Date: 20080405
  Serious: Yes (Hospitalization)
  Sender: FDA-Public Use
  Company Number: None

PATIENT
  Age: 21 Month
  Sex: Male

DRUGS (3)
  1. DIMETAPP [Suspect]
     Indication: COUGH
     Dosage: TO SECOND LINE OF GIVEN DROPPER GAVE HIM 1 DOSE
  2. DIMETAPP [Suspect]
     Indication: IRRITABILITY
     Dosage: TO SECOND LINE OF GIVEN DROPPER GAVE HIM 1 DOSE
  3. DIMETAPP [Suspect]
     Indication: NASAL CONGESTION
     Dosage: TO SECOND LINE OF GIVEN DROPPER GAVE HIM 1 DOSE

REACTIONS (3)
  - CONVULSION [None]
  - NEUROLOGICAL SYMPTOM [None]
  - PARTIAL SEIZURES [None]
